FAERS Safety Report 4336064-3 (Version None)
Quarter: 2004Q2

REPORT INFORMATION
  Report Type: 
  Country: None (occurrence: None)
  Receive Date: 20040406
  Receipt Date: 20040329
  Transmission Date: 20050107
  Serious: Yes (Hospitalization)
  Sender: FDA-Public Use
  Company Number: 200308601

PATIENT
  Age: 67 Year
  Sex: Male

DRUGS (9)
  1. STREPTASE [Suspect]
     Indication: MYOCARDIAL INFARCTION
     Dosage: 1.5 MIU DAILY IV
     Route: 042
     Dates: start: 20030130, end: 20030130
  2. ASPIRIN [Suspect]
     Indication: MYOCARDIAL INFARCTION
     Dosage: 150 MG DAILY PO
     Route: 048
     Dates: start: 20030130
  3. ENOXAPARIN  OR PLACEBO VS HEPARIN OR PLACEBO [Suspect]
     Indication: MYOCARDIAL INFARCTION
     Dosage: IV
     Route: 042
     Dates: start: 20030130, end: 20030130
  4. GTN SPRAY (GLYCERYL TRINITRATE SPRAY) [Suspect]
     Indication: CHEST PAIN
     Dosage: IH
     Dates: start: 20030130
  5. MAXOLON [Concomitant]
  6. CYCLIZINE [Concomitant]
  7. SIMVASTATIN [Concomitant]
  8. PRENADOL [Concomitant]
  9. SLOW-K [Concomitant]

REACTIONS (4)
  - CIRCULATORY COLLAPSE [None]
  - CORONARY ARTERY DISEASE [None]
  - LOSS OF CONSCIOUSNESS [None]
  - MYOCARDIAL ISCHAEMIA [None]
